FAERS Safety Report 7742059-X (Version None)
Quarter: 2011Q3

REPORT INFORMATION
  Report Type: 
  Country: None (occurrence: None)
  Receive Date: 20110912
  Receipt Date: 20110901
  Transmission Date: 20111222
  Serious: No
  Sender: FDA-Public Use
  Company Number: PHEH2011US03082

PATIENT
  Sex: Female

DRUGS (3)
  1. ATENOLOL [Concomitant]
     Dosage: 25 MG, UNK
  2. AZITHROMYCIN [Concomitant]
     Dosage: 250 MG, UNK
  3. TASIGNA [Suspect]
     Dosage: 400 MG AM, 200 MG PM
     Route: 048

REACTIONS (2)
  - RASH [None]
  - ALOPECIA [None]
